FAERS Safety Report 10213309 (Version 4)
Quarter: 2019Q1

REPORT INFORMATION
  Report Type: Report from Study
  Country: US (occurrence: US)
  Receive Date: 20140603
  Receipt Date: 20190218
  Transmission Date: 20190417
  Serious: Yes (Other)
  Sender: FDA-Public Use
  Company Number: US-ROCHE-1222184

PATIENT
  Sex: Female
  Weight: 94.43 kg

DRUGS (17)
  1. LISINOPRIL. [Concomitant]
     Active Substance: LISINOPRIL
     Indication: HYPERTENSION
     Route: 048
  2. TRAMADOL. [Concomitant]
     Active Substance: TRAMADOL
     Indication: PAIN
     Route: 048
  3. BACTRIM [Concomitant]
     Active Substance: SULFAMETHOXAZOLE\TRIMETHOPRIM
     Route: 065
  4. RITUXAN [Suspect]
     Active Substance: RITUXIMAB
     Indication: POLYARTERITIS NODOSA
  5. METFORMIN HYDROCHLORIDE. [Concomitant]
     Active Substance: METFORMIN HYDROCHLORIDE
     Indication: DIABETES MELLITUS
     Route: 048
  6. RITUXAN [Suspect]
     Active Substance: RITUXIMAB
     Indication: MICROSCOPIC POLYANGIITIS
  7. PREDNISONE. [Concomitant]
     Active Substance: PREDNISONE
     Indication: MICROSCOPIC POLYANGIITIS
     Route: 048
     Dates: start: 2008
  8. RITUXAN [Suspect]
     Active Substance: RITUXIMAB
     Indication: CENTRAL NERVOUS SYSTEM LYMPHOMA
  9. RITUXAN [Suspect]
     Active Substance: RITUXIMAB
     Indication: VASCULITIS
  10. BROMOCRIPTINE [Concomitant]
     Active Substance: BROMOCRIPTINE
     Indication: PITUITARY TUMOUR
     Route: 048
  11. SOLU-MEDROL [Concomitant]
     Active Substance: METHYLPREDNISOLONE SODIUM SUCCINATE
  12. ESTRADIOL. [Concomitant]
     Active Substance: ESTRADIOL
     Indication: MENOPAUSAL SYMPTOMS
     Route: 065
  13. BENADRYL [Concomitant]
     Active Substance: DIPHENHYDRAMINE HYDROCHLORIDE
  14. RITUXAN [Suspect]
     Active Substance: RITUXIMAB
     Indication: RHEUMATOID ARTHRITIS
     Route: 042
     Dates: start: 2012
  15. CELLCEPT [Concomitant]
     Active Substance: MYCOPHENOLATE MOFETIL\MYCOPHENOLATE MOFETIL HYDROCHLORIDE
     Route: 048
     Dates: start: 2012
  16. LORTAB [Concomitant]
     Active Substance: ACETAMINOPHEN\HYDROCODONE BITARTRATE
     Indication: PAIN
     Route: 048
  17. BROMOCRIPTINE [Concomitant]
     Active Substance: BROMOCRIPTINE
     Indication: PITUITARY-DEPENDENT CUSHING^S SYNDROME

REACTIONS (27)
  - Fear [Unknown]
  - Meningitis [Unknown]
  - Musculoskeletal stiffness [Unknown]
  - Pain [Not Recovered/Not Resolved]
  - Mood altered [Unknown]
  - Eye pain [Not Recovered/Not Resolved]
  - Palpitations [Not Recovered/Not Resolved]
  - Epistaxis [Unknown]
  - Erythema [Unknown]
  - Hot flush [Unknown]
  - Rhinalgia [Unknown]
  - Pituitary tumour [Not Recovered/Not Resolved]
  - Flushing [Unknown]
  - Syncope [Unknown]
  - Heart rate increased [Unknown]
  - Nausea [Unknown]
  - Dyspnoea [Unknown]
  - Malaise [Unknown]
  - Infusion related reaction [Recovered/Resolved]
  - Dizziness [Unknown]
  - Chills [Unknown]
  - Eye pain [Unknown]
  - Visual impairment [Unknown]
  - Pyrexia [Unknown]
  - Anxiety [Not Recovered/Not Resolved]
  - Infection [Unknown]
  - Headache [Unknown]

NARRATIVE: CASE EVENT DATE: 2012
